FAERS Safety Report 5083429-0 (Version None)
Quarter: 2006Q3

REPORT INFORMATION
  Report Type: 
  Country: None (occurrence: None)
  Receive Date: 20060818
  Receipt Date: 20060808
  Transmission Date: 20061208
  Serious: Yes (Other)
  Sender: FDA-Public Use
  Company Number: PHEH2006US10163

PATIENT
  Age: 71 Year
  Sex: Female
  Weight: 76.19 kg

DRUGS (3)
  1. ZOMETA [Suspect]
     Indication: METASTASES TO BONE
     Dosage: 4 MG, QMO
     Dates: start: 20040212, end: 20060404
  2. VINORELBINE [Concomitant]
  3. IRON DEXTRAN [Concomitant]
     Route: 042

REACTIONS (4)
  - BONE DISORDER [None]
  - INFECTION [None]
  - OSTEONECROSIS [None]
  - TOOTH EXTRACTION [None]
